FAERS Safety Report 9424363 (Version 1)
Quarter: 2013Q3

REPORT INFORMATION
  Report Type: Spontaneous
  Country: US (occurrence: None)
  Receive Date: 20130726
  Receipt Date: 20130726
  Transmission Date: 20140515
  Serious: No
  Sender: FDA-Public Use
  Company Number: None

PATIENT
  Age: 48 Year
  Sex: Female

DRUGS (6)
  1. AFINITOR [Suspect]
     Indication: BREAST CANCER
     Route: 048
  2. EXEMESTANE [Concomitant]
  3. ALEVE [Concomitant]
  4. OMEPRAZOLE [Concomitant]
  5. VITAMIN 03 [Concomitant]
  6. HYDROCODONE/AAAP [Concomitant]

REACTIONS (1)
  - Drug ineffective [None]
